FAERS Safety Report 6158026-6 (Version None)
Quarter: 2009Q2

REPORT INFORMATION
  Report Type: 
  Country: None (occurrence: None)
  Receive Date: 20090417
  Receipt Date: 20090408
  Transmission Date: 20091009
  Serious: Yes (Hospitalization, Other)
  Sender: FDA-Public Use
  Company Number: US-PFIZER INC-2006086689

PATIENT
  Sex: Female
  Weight: 71 kg

DRUGS (9)
  1. PROVERA [Suspect]
     Indication: HORMONE REPLACEMENT THERAPY
     Dosage: UNK
     Route: 048
     Dates: end: 19990101
  2. MEDROXYPROGESTERONE [Suspect]
     Indication: HORMONE REPLACEMENT THERAPY
     Route: 048
  3. PREMPRO [Suspect]
     Indication: MENOPAUSAL SYMPTOMS
     Dosage: 0.625/2.5MG
     Dates: start: 20000801, end: 20010201
  4. PREMPRO [Suspect]
     Dosage: 0.625/5MG
     Dates: start: 20010201, end: 20030101
  5. ACTIVELLA [Suspect]
     Indication: MENOPAUSAL SYMPTOMS
     Dosage: 1/0.5MG
     Dates: start: 20010401, end: 20010501
  6. PREFEST [Suspect]
     Indication: MENOPAUSAL SYMPTOMS
     Dosage: 1/0.9MG
     Dates: start: 20010901, end: 20020401
  7. FEMHRT [Suspect]
     Indication: MENOPAUSAL SYMPTOMS
     Dosage: 1/5MG
     Dates: start: 20010901, end: 20020401
  8. XANAX [Concomitant]
     Indication: PANIC ATTACK
     Dosage: UNK
     Dates: start: 20020101
  9. ASPIRIN [Concomitant]
     Indication: BLOOD DISORDER
     Dosage: 81 MG, UNK
     Dates: start: 20020101

REACTIONS (1)
  - BREAST CANCER FEMALE [None]
